FAERS Safety Report 8763084 (Version 2)
Quarter: 2012Q4

REPORT INFORMATION
  Report Type: Spontaneous
  Country: AU (occurrence: None)
  Receive Date: 20120820
  Receipt Date: 20120910
  Transmission Date: 20130627
  Serious: Yes (Disabling)
  Sender: FDA-Public Use
  Company Number: GAM-159-12-AU

PATIENT
  Age: 35 Year
  Sex: Male

DRUGS (1)
  1. OCTAGAM [Suspect]
     Indication: MULTIFOCAL MOTOR NEUROPATHY
     Dosage: 40 g (1x 1 / Cyclical)
     Route: 042
     Dates: start: 20120720, end: 20120720

REACTIONS (7)
  - Condition aggravated [None]
  - Fatigue [None]
  - Lethargy [None]
  - Headache [None]
  - Muscular weakness [None]
  - Clumsiness [None]
  - Balance disorder [None]
